FAERS Safety Report 4334968-9 (Version None)
Quarter: 2004Q2

REPORT INFORMATION
  Report Type: 
  Country: None (occurrence: None)
  Receive Date: 20040405
  Receipt Date: 20040324
  Transmission Date: 20050107
  Serious: No
  Sender: FDA-Public Use
  Company Number: UKP04000050

PATIENT
  Age: 61 Year
  Sex: Male

DRUGS (11)
  1. DANTRIUM [Suspect]
     Indication: MUSCLE SPASMS
     Dosage: 25 MG, 3 /DAY, ORAL
     Route: 048
     Dates: start: 20040101
  2. CARBAMAZEPINE [Concomitant]
  3. BACLOFEN [Concomitant]
  4. RANITIDINE [Concomitant]
  5. WARFARIN SODIUM [Concomitant]
  6. FYBOGEL (ISPAGHULA) [Concomitant]
  7. LACTULOSE [Concomitant]
  8. DIHYDROCODEINE (DIHYDROCODEINE) [Concomitant]
  9. LOFEPRAMINE (LOFEPRAMINE) [Concomitant]
  10. PARACETAMOL TABLET [Concomitant]
  11. TEMAZEPAM [Concomitant]

REACTIONS (1)
  - FEELING HOT [None]
